FAERS Safety Report 4507284-X (Version None)
Quarter: 2005Q1

REPORT INFORMATION
  Report Type: 
  Country: None (occurrence: None)
  Receive Date: 20041025
  Receipt Date: 20040630
  Transmission Date: 20050727
  Serious: Yes (Other)
  Sender: FDA-Public Use
  Company Number: US-JNJFOC-20040603231

PATIENT
  Sex: Female

DRUGS (1)
  1. REMICADE [Suspect]

REACTIONS (1)
  - NON-HODGKIN'S LYMPHOMA [None]
